FAERS Safety Report 13585162 (Version 1)
Quarter: 2017Q2

REPORT INFORMATION
  Report Type: Spontaneous
  Country: PK (occurrence: PK)
  Receive Date: 20170526
  Receipt Date: 20170526
  Transmission Date: 20170830
  Serious: Yes (Other)
  Sender: FDA-Public Use
  Company Number: PK-SA-2017SA092113

PATIENT
  Sex: Female

DRUGS (3)
  1. LANTUS SOLOSTAR [Suspect]
     Active Substance: INSULIN GLARGINE
     Indication: HYPERGLYCAEMIA
     Route: 058
     Dates: start: 20170419
  2. HUMULIN R [Suspect]
     Active Substance: INSULIN HUMAN
     Indication: HYPERGLYCAEMIA
     Route: 065
  3. SOLOSTAR [Concomitant]
     Active Substance: DEVICE
     Indication: HYPERGLYCAEMIA
     Dates: start: 20170419

REACTIONS (3)
  - Hyperglycaemia [Not Recovered/Not Resolved]
  - Cellulitis [Unknown]
  - Diabetic foot [Not Recovered/Not Resolved]
